FAERS Safety Report 19817348 (Version 1)
Quarter: 2021Q3

REPORT INFORMATION
  Report Type: Spontaneous
  Country: US (occurrence: US)
  Receive Date: 20210910
  Receipt Date: 20210910
  Transmission Date: 20211014
  Serious: No
  Sender: FDA-Public Use
  Company Number: US-3M-2021-US-007771

PATIENT
  Age: 76 Year
  Sex: Female

DRUGS (2)
  1. VITAMIN D [Concomitant]
     Active Substance: VITAMIN D NOS
  2. PERIDEX [Suspect]
     Active Substance: CHLORHEXIDINE GLUCONATE
     Indication: ABSCESS
     Dosage: 1 TIMES PER DAY, (WAS SUPPOSED TO USE IT 2 TIMES PER DAY ON 05?APR?2021)
     Route: 048
     Dates: start: 20210405

REACTIONS (4)
  - Product use in unapproved indication [Not Recovered/Not Resolved]
  - Hypogeusia [Not Recovered/Not Resolved]
  - Oral discomfort [Not Recovered/Not Resolved]
  - Paraesthesia oral [Not Recovered/Not Resolved]

NARRATIVE: CASE EVENT DATE: 20210405
